FAERS Safety Report 5141775-6 (Version None)
Quarter: 2006Q4

REPORT INFORMATION
  Report Type: 
  Country: None (occurrence: None)
  Receive Date: 20061027
  Receipt Date: 20061010
  Transmission Date: 20070319
  Serious: Yes (Other)
  Sender: FDA-Public Use
  Company Number: CA200607003285

PATIENT
  Sex: Female

DRUGS (1)
  1. PROZAC [Suspect]
     Indication: DEPRESSION
     Dosage: 20 MG, DAILY (1/D)
     Dates: start: 19960101

REACTIONS (5)
  - ARTHRITIS [None]
  - CHOLECYSTECTOMY [None]
  - DYSTONIA [None]
  - HIP ARTHROPLASTY [None]
  - SPEECH DISORDER [None]
